FAERS Safety Report 24422028 (Version 1)
Quarter: 2024Q4

REPORT INFORMATION
  Report Type: Spontaneous
  Country: US (occurrence: US)
  Receive Date: 20241010
  Receipt Date: 20241010
  Transmission Date: 20250114
  Serious: Yes (Death, Hospitalization, Other)
  Sender: STERISCIENCE PTE
  Company Number: US-STERISCIENCE B.V.-2024-ST-001600

PATIENT
  Age: 69 Year
  Sex: Male

DRUGS (7)
  1. AMPICILLIN [Suspect]
     Active Substance: AMPICILLIN
     Indication: Listeriosis
     Dosage: UNK
     Route: 065
  2. AMPICILLIN [Suspect]
     Active Substance: AMPICILLIN
     Indication: Encephalitis brain stem
  3. GENTAMICIN [Suspect]
     Active Substance: GENTAMICIN
     Indication: Listeriosis
     Dosage: UNK
     Route: 065
  4. GENTAMICIN [Suspect]
     Active Substance: GENTAMICIN
     Indication: Encephalitis brain stem
  5. VANCOMYCIN [Concomitant]
     Active Substance: VANCOMYCIN
     Indication: Evidence based treatment
     Dosage: UNK
     Route: 065
  6. ACYCLOVIR [Concomitant]
     Active Substance: ACYCLOVIR
     Indication: Evidence based treatment
     Dosage: UNK
     Route: 065
  7. CEFTRIAXONE [Concomitant]
     Active Substance: CEFTRIAXONE
     Indication: Evidence based treatment
     Dosage: UNK
     Route: 065

REACTIONS (2)
  - Disease progression [Fatal]
  - Drug ineffective [Fatal]
